FAERS Safety Report 8978739 (Version 1)
Quarter: 2012Q4

REPORT INFORMATION
  Report Type: Spontaneous
  Country: JP (occurrence: None)
  Receive Date: 20121114
  Receipt Date: 20121114
  Transmission Date: 20130627
  Serious: Yes (Death)
  Sender: FDA-Public Use
  Company Number: DSA_60843_2012

PATIENT
  Age: 49 Year
  Sex: Female

DRUGS (1)
  1. HERBESSER [Suspect]
     Route: 048
     Dates: start: 20120718

REACTIONS (3)
  - Muscle rigidity [None]
  - Overdose [None]
  - Completed suicide [None]
